FAERS Safety Report 6871157-8 (Version None)
Quarter: 2010Q3

REPORT INFORMATION
  Report Type: 
  Country: None (occurrence: None)
  Receive Date: 20100723
  Receipt Date: 20100716
  Transmission Date: 20110219
  Serious: Yes (Other)
  Sender: FDA-Public Use
  Company Number: US-ROCHE-711269

PATIENT
  Sex: Male
  Weight: 63 kg

DRUGS (1)
  1. ISOTRETINOIN [Suspect]
     Route: 048

REACTIONS (1)
  - OSTEITIS [None]
